FAERS Safety Report 4607759-9 (Version None)
Quarter: 2005Q1

REPORT INFORMATION
  Report Type: 
  Country: None (occurrence: None)
  Receive Date: 20050314
  Receipt Date: 20050311
  Transmission Date: 20050727
  Serious: Yes (Other)
  Sender: FDA-Public Use
  Company Number: US-GLAXOSMITHKLINE-A0549418A

PATIENT
  Sex: Male

DRUGS (4)
  1. AVANDAMET [Suspect]
     Dosage: 1TAB PER DAY
     Route: 048
  2. ASPIRIN [Concomitant]
     Indication: DRUG USE FOR UNKNOWN INDICATION
  3. LIPITOR [Concomitant]
     Indication: DRUG USE FOR UNKNOWN INDICATION
  4. SYNTHROID [Concomitant]
     Indication: DRUG USE FOR UNKNOWN INDICATION

REACTIONS (2)
  - JAUNDICE [None]
  - SKIN DISORDER [None]
